FAERS Safety Report 8042769-3 (Version None)
Quarter: 2012Q1

REPORT INFORMATION
  Report Type: 
  Country: None (occurrence: None)
  Receive Date: 20120112
  Receipt Date: 20111230
  Transmission Date: 20120608
  Serious: Yes (Disabling)
  Sender: FDA-Public Use
  Company Number: US-UCBSA-048640

PATIENT
  Age: 42 Year
  Sex: Female
  Weight: 70.76 kg

DRUGS (16)
  1. PREDNISONE TAB [Concomitant]
     Indication: CROHN'S DISEASE
     Dosage: UNKNOWN DOSE
     Dates: start: 20001001, end: 20030601
  2. PREDNISONE TAB [Concomitant]
     Dates: start: 20090723
  3. CALCIUM [Concomitant]
     Indication: CROHN'S DISEASE
     Route: 048
  4. CIMZIA [Suspect]
     Indication: CROHN'S DISEASE
     Route: 058
     Dates: start: 20100403
  5. HUMIRA [Suspect]
     Indication: CROHN'S DISEASE
     Dosage: UNKNOWN DOSE
     Dates: start: 20101201, end: 20111207
  6. BENTYL [Concomitant]
     Route: 048
  7. CIMZIA [Suspect]
     Route: 058
     Dates: start: 20090827, end: 20100403
  8. LEXAPRO [Concomitant]
     Route: 048
  9. WELLBUTRIN [Concomitant]
     Route: 048
  10. PREDNISONE TAB [Concomitant]
     Dosage: UNKNOWN DOSE
     Dates: start: 20080612, end: 20080701
  11. WELLBUTRIN [Concomitant]
     Route: 048
  12. NEXIUM [Concomitant]
  13. PREDNISONE TAB [Concomitant]
  14. MULTI-VITAMIN [Concomitant]
     Indication: CROHN'S DISEASE
     Dosage: UNKNOWN DOSE
     Route: 048
  15. PREDNISONE TAB [Concomitant]
     Dosage: UNKNOWN DOSE
     Dates: start: 20080814, end: 20081101
  16. BENTYL [Concomitant]
     Route: 048

REACTIONS (2)
  - VIRAL INFECTION [None]
  - URTICARIA [None]
